FAERS Safety Report 9504217 (Version 1)
Quarter: 2013Q3

REPORT INFORMATION
  Report Type: Spontaneous
  Country: None (occurrence: CH)
  Receive Date: 20130906
  Receipt Date: 20130906
  Transmission Date: 20140515
  Serious: Yes (Hospitalization)
  Sender: FDA-Public Use
  Company Number: CH-ALLERGAN-1313549US

PATIENT
  Age: 76 Year
  Sex: Male

DRUGS (13)
  1. TROSPIUM CHLORIDE UNK [Suspect]
     Indication: PAIN
     Dosage: 20 MG, QD
     Route: 048
     Dates: start: 20120829, end: 20130810
  2. SEVREDOL [Suspect]
     Indication: PAIN
     Dosage: 5 MG, PRN
     Route: 048
     Dates: start: 20090812, end: 20130810
  3. ZOLPIDEM [Suspect]
     Indication: INSOMNIA
     Dosage: UNK
     Route: 048
     Dates: start: 20090831, end: 20130810
  4. REMERON [Suspect]
     Indication: SLEEP DISORDER
     Dosage: 15 MG, QD
     Route: 048
     Dates: start: 20090902
  5. EMSELEX /01760401/ [Suspect]
     Indication: BENIGN PROSTATIC HYPERPLASIA
     Dosage: 15 MG, QD
     Route: 048
     Dates: start: 20091028, end: 20130810
  6. TARGIN [Suspect]
     Indication: PAIN
     Dosage: 1 DF, QD
     Route: 048
     Dates: start: 20120427, end: 20130810
  7. DIGOXIN [Suspect]
     Indication: ATRIAL FIBRILLATION
     Dosage: 0.25 MG, QD
     Route: 048
     Dates: start: 20130404
  8. GLUCOPHAGE [Concomitant]
     Indication: PAIN
     Dosage: UNK
     Dates: start: 20081104
  9. ASPIRIN CARDIO [Concomitant]
     Dosage: UNK
     Dates: start: 20081203
  10. SIMVASTATIN [Concomitant]
     Dosage: UNK
     Dates: start: 20090802
  11. DAFALGAN [Concomitant]
     Dosage: UNK
     Dates: start: 20100310
  12. BLOPRESS [Concomitant]
     Dosage: UNK
     Dates: start: 20111109
  13. PROSTAGUTT FORTE [Concomitant]
     Dosage: UNK
     Dates: start: 20130206

REACTIONS (6)
  - Confusional state [Recovered/Resolved]
  - Pain [Recovered/Resolved]
  - Agitation [Recovered/Resolved]
  - Anxiety [Recovered/Resolved]
  - Drug interaction [Recovered/Resolved]
  - Fall [Recovered/Resolved]
